FAERS Safety Report 6690311-1 (Version None)
Quarter: 2010Q2

REPORT INFORMATION
  Report Type: 
  Country: None (occurrence: None)
  Receive Date: 20100421
  Receipt Date: 20100331
  Transmission Date: 20101027
  Serious: Yes (Death)
  Sender: FDA-Public Use
  Company Number: PHEH2010US03270

PATIENT
  Sex: Male
  Weight: 70.09 kg

DRUGS (5)
  1. ICL670A ICL+ [Suspect]
     Indication: MYELODYSPLASTIC SYNDROME
     Dosage: 1500 MG, QD
     Route: 048
     Dates: start: 20070417, end: 20100320
  2. ICL670A ICL+ [Suspect]
     Indication: IRON OVERLOAD
  3. FOLIC ACID [Concomitant]
     Indication: ANAEMIA
     Dosage: UNK
     Dates: start: 20090727, end: 20100319
  4. VITAMIN B-12 [Concomitant]
     Dosage: MONTHLY
     Dates: start: 20090908, end: 20100222
  5. VIDAZA [Concomitant]
     Indication: MYELODYSPLASTIC SYNDROME
     Dosage: UNK
     Dates: start: 20100222, end: 20100302

REACTIONS (4)
  - CONFUSIONAL STATE [None]
  - HAEMORRHAGE INTRACRANIAL [None]
  - HEADACHE [None]
  - UNRESPONSIVE TO STIMULI [None]
